FAERS Safety Report 14149510 (Version 1)
Quarter: 2017Q4

REPORT INFORMATION
  Report Type: Spontaneous
  Country: JP (occurrence: JP)
  Receive Date: 20171101
  Receipt Date: 20171101
  Transmission Date: 20180321
  Serious: Yes (Death, Other)
  Sender: FDA-Public Use
  Company Number: JP-009507513-1710JPN003454J

PATIENT
  Age: 73 Year
  Sex: Female
  Weight: 46 kg

DRUGS (5)
  1. LOXONIN [Concomitant]
     Active Substance: LOXOPROFEN SODIUM
     Indication: SQUAMOUS CELL CARCINOMA OF LUNG
     Dosage: 60 MG, TID
     Route: 048
  2. KEYTRUDA [Suspect]
     Active Substance: PEMBROLIZUMAB
     Indication: SQUAMOUS CELL CARCINOMA OF LUNG
     Dosage: 200 MG, Q3W
     Route: 041
     Dates: start: 20170621, end: 20170802
  3. NOVAMIN (PROCHLORPERAZINE MALEATE) [Concomitant]
     Active Substance: PROCHLORPERAZINE MALEATE
     Dosage: 5 MG, TID
     Route: 048
  4. LYRICA [Concomitant]
     Active Substance: PREGABALIN
     Indication: SQUAMOUS CELL CARCINOMA OF LUNG
     Dosage: 25 MG, QD
     Route: 048
  5. RABEPRAZOLE NA [Concomitant]
     Active Substance: RABEPRAZOLE SODIUM
     Dosage: 10 MG, QD
     Route: 048

REACTIONS (7)
  - Pulmonary haemorrhage [Recovered/Resolved]
  - Hypoglycaemia [Recovered/Resolved]
  - Adrenal insufficiency [Unknown]
  - Haemoptysis [Recovered/Resolved]
  - Pain [Not Recovered/Not Resolved]
  - Death [Fatal]
  - Dry mouth [Not Recovered/Not Resolved]

NARRATIVE: CASE EVENT DATE: 20170629
